FAERS Safety Report 7762895-3 (Version None)
Quarter: 2011Q3

REPORT INFORMATION
  Report Type: 
  Country: None (occurrence: None)
  Receive Date: 20110920
  Receipt Date: 20110915
  Transmission Date: 20111222
  Serious: Yes (Other)
  Sender: FDA-Public Use
  Company Number: US-ABBOTT-11P-163-0855494-00

PATIENT
  Sex: Female
  Weight: 108.96 kg

DRUGS (5)
  1. HUMIRA [Suspect]
     Indication: PSORIASIS
     Dates: start: 20070101, end: 20080401
  2. ENBREL [Suspect]
     Indication: PSORIASIS
     Dates: start: 20110301, end: 20110701
  3. KLONOPIN [Concomitant]
     Indication: ANXIETY
  4. AMBIEN [Concomitant]
     Indication: INSOMNIA
     Dosage: TAKE ONE AT BEDTIME, AS NEEDED
  5. HUMIRA [Suspect]
     Dates: start: 20110101, end: 20110301

REACTIONS (15)
  - INTERVERTEBRAL DISC DEGENERATION [None]
  - MALAISE [None]
  - BACK PAIN [None]
  - OSTEOARTHRITIS [None]
  - HEADACHE [None]
  - HYPOTHYROIDISM [None]
  - HYPERHIDROSIS [None]
  - ASTHENIA [None]
  - ADRENOCORTICAL INSUFFICIENCY ACUTE [None]
  - CYST [None]
  - FIBROMYALGIA [None]
  - DRUG INEFFECTIVE [None]
  - PSORIASIS [None]
  - NAUSEA [None]
  - PALPITATIONS [None]
